FAERS Safety Report 6540074-5 (Version None)
Quarter: 2010Q1

REPORT INFORMATION
  Report Type: 
  Country: None (occurrence: None)
  Receive Date: 20100115
  Receipt Date: 20100113
  Transmission Date: 20100710
  Serious: Yes (Other)
  Sender: FDA-Public Use
  Company Number: BR-ROXANE LABORATORIES, INC.-2010-RO-00024RO

PATIENT
  Age: 18 Year
  Sex: Male

DRUGS (5)
  1. FUROSEMIDE [Suspect]
     Route: 048
  2. DECADUROBOLIN [Suspect]
     Route: 048
  3. STANOZOLOL [Suspect]
     Route: 048
  4. AMINO ACIDS [Concomitant]
  5. DISTILLED WATER [Concomitant]
     Route: 048

REACTIONS (1)
  - RETINAL VEIN OCCLUSION [None]
